FAERS Safety Report 17190469 (Version 1)
Quarter: 2019Q4

REPORT INFORMATION
  Report Type: Spontaneous
  Country: US (occurrence: US)
  Receive Date: 20191220
  Receipt Date: 20191220
  Transmission Date: 20200122
  Serious: Yes (Disabling, Other)
  Sender: FDA-Public Use
  Company Number: None

PATIENT
  Age: 58 Year
  Sex: Male
  Weight: 126 kg

DRUGS (1)
  1. KLONOPIN [Suspect]
     Active Substance: CLONAZEPAM
     Indication: PANIC DISORDER
     Dosage: ?          QUANTITY:30 TABLET(S);?
     Route: 048
     Dates: start: 20100513, end: 20170808

REACTIONS (25)
  - Hepatic failure [None]
  - Dizziness [None]
  - Pyrexia [None]
  - Headache [None]
  - Aphonia [None]
  - Pain [None]
  - Cough [None]
  - Dyspnoea [None]
  - Decreased interest [None]
  - Chills [None]
  - Rhinorrhoea [None]
  - Cerebral atrophy [None]
  - Gait disturbance [None]
  - Disturbance in attention [None]
  - Insomnia [None]
  - Ear congestion [None]
  - Nasal congestion [None]
  - Coordination abnormal [None]
  - Somnolence [None]
  - Decreased appetite [None]
  - Sneezing [None]
  - Irritability [None]
  - Oropharyngeal pain [None]
  - Depressed mood [None]
  - Fatigue [None]

NARRATIVE: CASE EVENT DATE: 20180515
